FAERS Safety Report 4361420-7 (Version None)
Quarter: 2004Q2

REPORT INFORMATION
  Report Type: 
  Country: None (occurrence: None)
  Receive Date: 20040517
  Receipt Date: 20040506
  Transmission Date: 20050107
  Serious: Yes (Other)
  Sender: FDA-Public Use
  Company Number: 2003-111314-NL

PATIENT
  Age: 21 Year
  Sex: Female
  Weight: 63.5 kg

DRUGS (6)
  1. MIRCETTE [Suspect]
     Indication: ENDOMETRIOSIS
     Dosage: 1 DF DAILY ORAL
     Route: 048
     Dates: start: 20030601, end: 20030901
  2. LORTAB [Concomitant]
  3. MOTRIN [Concomitant]
  4. MULTIVITAMIN [Concomitant]
  5. ORTHO TRI-CYCLEN [Concomitant]
  6. ORTHO-CEPT [Concomitant]

REACTIONS (2)
  - ALOPECIA AREATA [None]
  - ALOPECIA EFFLUVIUM [None]
